FAERS Safety Report 6523367-7 (Version None)
Quarter: 2009Q4

REPORT INFORMATION
  Report Type: 
  Country: None (occurrence: None)
  Receive Date: 20091231
  Receipt Date: 20091218
  Transmission Date: 20100525
  Serious: Yes (Hospitalization)
  Sender: FDA-Public Use
  Company Number: US-BRISTOL-MYERS SQUIBB COMPANY-14803829

PATIENT
  Age: 52 Year
  Sex: Female

DRUGS (4)
  1. ARIPIPRAZOLE [Suspect]
     Indication: SCHIZOPHRENIA
     Dosage: ARIPIPRAZOLE IM DEPOT LAST DOSE: 20AUG09
     Route: 065
     Dates: start: 20090427, end: 20090820
  2. LEVOTHYROXINE SODIUM [Concomitant]
  3. VALSARTAN [Concomitant]
     Dates: start: 20060101
  4. LORAZEPAM [Concomitant]
     Dates: start: 20090616

REACTIONS (1)
  - SCHIZOPHRENIA [None]
